FAERS Safety Report 19330409 (Version 1)
Quarter: 2021Q2

REPORT INFORMATION
  Report Type: Spontaneous
  Country: US (occurrence: US)
  Receive Date: 20210528
  Receipt Date: 20210528
  Transmission Date: 20210717
  Serious: Yes (Other)
  Sender: FDA-Public Use
  Company Number: US-RECKITT BENCKISER HEALTHCARE INT LIMITED-RB-87939-2021

PATIENT
  Age: 3 Year
  Sex: Male

DRUGS (1)
  1. DEXTROMETHORPHAN [Suspect]
     Active Substance: DEXTROMETHORPHAN
     Indication: PRODUCT USED FOR UNKNOWN INDICATION
     Dosage: 20 MILLIGRAM, EVERY FOUR HOURS
     Route: 065

REACTIONS (8)
  - Pyrexia [Recovered/Resolved]
  - Cough [Recovered/Resolved]
  - Product administered to patient of inappropriate age [Recovered/Resolved]
  - Staring [Recovered/Resolved]
  - Tremor [Recovered/Resolved]
  - Mental status changes [Recovered/Resolved]
  - Hypoxia [Recovered/Resolved]
  - Somnolence [Recovered/Resolved]
